FAERS Safety Report 7236600-3 (Version None)
Quarter: 2011Q1

REPORT INFORMATION
  Report Type: 
  Country: None (occurrence: None)
  Receive Date: 20110120
  Receipt Date: 20110110
  Transmission Date: 20110831
  Serious: Yes (Other)
  Sender: FDA-Public Use
  Company Number: US-MYLANLABS-2011S1000626

PATIENT
  Sex: Male

DRUGS (1)
  1. ULTIVA [Suspect]
     Route: 047

REACTIONS (3)
  - ACCIDENTAL EXPOSURE [None]
  - EYE IRRITATION [None]
  - VISUAL IMPAIRMENT [None]
